FAERS Safety Report 20911813 (Version 1)
Quarter: 2022Q2

REPORT INFORMATION
  Report Type: Spontaneous
  Country: US (occurrence: US)
  Receive Date: 20220603
  Receipt Date: 20220603
  Transmission Date: 20220721
  Serious: Yes (Other)
  Sender: FDA-Public Use
  Company Number: US-TEVA-2022-US-2041316

PATIENT
  Age: 65 Year
  Sex: Female
  Weight: 86.18 kg

DRUGS (9)
  1. AJOVY [Suspect]
     Active Substance: FREMANEZUMAB-VFRM
     Indication: Migraine
     Dosage: 225/1.5 MG/ML
     Route: 065
     Dates: start: 2021
  2. AJOVY [Suspect]
     Active Substance: FREMANEZUMAB-VFRM
  3. COPAXONE [Interacting]
     Active Substance: GLATIRAMER ACETATE
     Route: 065
  4. CARVEDILOL [Concomitant]
     Active Substance: CARVEDILOL
     Indication: Hypertension
  5. HUMAN IMMUNOGLOBULIN G [Concomitant]
     Active Substance: HUMAN IMMUNOGLOBULIN G
     Indication: Multiple sclerosis
     Dosage: MONTHLY
  6. FAMOTIDINE [Concomitant]
     Active Substance: FAMOTIDINE
  7. ZEGERID [Concomitant]
     Active Substance: OMEPRAZOLE\SODIUM BICARBONATE
  8. TRANEXAMIC ACID [Concomitant]
     Active Substance: TRANEXAMIC ACID
     Indication: Haemorrhage
     Route: 048
  9. OXYBUTYNIN [Concomitant]
     Active Substance: OXYBUTYNIN
     Indication: Bladder disorder

REACTIONS (7)
  - Bronchitis [Unknown]
  - Concussion [Recovered/Resolved]
  - Fall [Recovered/Resolved]
  - Weight increased [Unknown]
  - Head injury [Recovered/Resolved]
  - Illness [Unknown]
  - Product dose omission issue [Unknown]

NARRATIVE: CASE EVENT DATE: 20211201
